FAERS Safety Report 7570973-7 (Version None)
Quarter: 2011Q2

REPORT INFORMATION
  Report Type: 
  Country: None (occurrence: None)
  Receive Date: 20110624
  Receipt Date: 20110613
  Transmission Date: 20111010
  Serious: Yes (Hospitalization)
  Sender: FDA-Public Use
  Company Number: JP-ASTRAZENECA-2011SE37398

PATIENT
  Age: 23919 Day
  Sex: Male

DRUGS (5)
  1. HEPARIN SODIUM [Concomitant]
     Indication: THROMBOSIS PROPHYLAXIS
     Dates: start: 20110330, end: 20110418
  2. MEROPENEM [Suspect]
     Indication: MENINGOENCEPHALITIS BACTERIAL
     Route: 042
     Dates: start: 20110404, end: 20110425
  3. ROCEPHIN [Concomitant]
     Indication: MENINGOENCEPHALITIS BACTERIAL
     Dates: start: 20110330, end: 20110403
  4. FAMOTIDINE [Concomitant]
     Indication: GASTRIC ULCER
     Dates: start: 20110405, end: 20110418
  5. VANCOMYCIN HYRDOCHLORIDE [Concomitant]
     Indication: MENINGOENCEPHALITIS BACTERIAL
     Dates: start: 20110404, end: 20110418

REACTIONS (5)
  - ALANINE AMINOTRANSFERASE INCREASED [None]
  - BLOOD LACTATE DEHYDROGENASE INCREASED [None]
  - HEPATIC FUNCTION ABNORMAL [None]
  - ASPARTATE AMINOTRANSFERASE INCREASED [None]
  - GRANULOCYTOPENIA [None]
